FAERS Safety Report 23557152 (Version 7)
Quarter: 2024Q4

REPORT INFORMATION
  Report Type: Report from Study
  Country: CA (occurrence: CA)
  Receive Date: 20240223
  Receipt Date: 20241015
  Transmission Date: 20250115
  Serious: Yes (Other)
  Sender: UCB
  Company Number: CA-UCBSA-2024008334

PATIENT
  Sex: Female

DRUGS (2)
  1. CERTOLIZUMAB PEGOL [Suspect]
     Active Substance: CERTOLIZUMAB PEGOL
     Indication: Ankylosing spondylitis
     Dosage: 400 MILLIGRAM, EV 2 WEEKS(QOW)
     Route: 058
     Dates: start: 20240131
  2. CERTOLIZUMAB PEGOL [Suspect]
     Active Substance: CERTOLIZUMAB PEGOL
     Dosage: 200 MILLIGRAM, EV 2 WEEKS(QOW) (MAINTENANCE DOSE))
     Route: 058
     Dates: start: 20240313

REACTIONS (21)
  - Ankylosing spondylitis [Recovering/Resolving]
  - Kidney infection [Unknown]
  - Haematochezia [Unknown]
  - Chest pain [Recovered/Resolved]
  - Limb discomfort [Unknown]
  - Nausea [Unknown]
  - Headache [Unknown]
  - Arthralgia [Unknown]
  - Fatigue [Unknown]
  - Vomiting [Unknown]
  - Urinary tract infection [Unknown]
  - Fungal infection [Unknown]
  - White blood cell count increased [Unknown]
  - Alanine aminotransferase increased [Unknown]
  - Aspartate aminotransferase increased [Unknown]
  - Infection [Unknown]
  - Malaise [Unknown]
  - Weight decreased [Unknown]
  - Diarrhoea [Unknown]
  - Alopecia [Unknown]
  - Hepatic enzyme increased [Unknown]

NARRATIVE: CASE EVENT DATE: 20240101
